FAERS Safety Report 6811988-3 (Version None)
Quarter: 2010Q3

REPORT INFORMATION
  Report Type: 
  Country: None (occurrence: None)
  Receive Date: 20100701
  Receipt Date: 20100617
  Transmission Date: 20110219
  Serious: Yes (Other)
  Sender: FDA-Public Use
  Company Number: PHHY2010BR39818

PATIENT
  Sex: Male

DRUGS (3)
  1. EXFORGE [Suspect]
     Dosage: 160/5 MG
  2. ATENOLOL [Concomitant]
  3. ENALAPRIL MALEATE [Concomitant]

REACTIONS (4)
  - BLOOD PRESSURE INADEQUATELY CONTROLLED [None]
  - HEART RATE IRREGULAR [None]
  - HEPATITIS A [None]
  - HYPERTENSION [None]
